FAERS Safety Report 5840708-4 (Version None)
Quarter: 2008Q3

REPORT INFORMATION
  Report Type: 
  Country: None (occurrence: None)
  Receive Date: 20080811
  Receipt Date: 20080730
  Transmission Date: 20090109
  Serious: Yes (Congenital Anomaly, Other)
  Sender: FDA-Public Use
  Company Number: US-PFIZER INC-2007095378

PATIENT
  Sex: Female

DRUGS (6)
  1. ZOLOFT [Suspect]
     Indication: TENSION HEADACHE
  2. ZOLOFT [Suspect]
     Indication: DEPRESSION
  3. ZOLOFT [Suspect]
     Indication: INSOMNIA
  4. ZOLOFT [Suspect]
     Indication: DRUG INTOLERANCE
  5. PAXIL [Concomitant]
  6. PROZAC [Concomitant]

REACTIONS (8)
  - AORTIC VALVE PROLAPSE [None]
  - CARDIAC MURMUR [None]
  - CYANOSIS [None]
  - DRUG EXPOSURE DURING PREGNANCY [None]
  - LEFT ATRIAL DILATATION [None]
  - MATERNAL DRUGS AFFECTING FOETUS [None]
  - POST-TRAUMATIC STRESS DISORDER [None]
  - VENTRICULAR SEPTAL DEFECT [None]
